FAERS Safety Report 21665455 (Version 3)
Quarter: 2023Q4

REPORT INFORMATION
  Report Type: Spontaneous
  Country: US (occurrence: US)
  Receive Date: 20221201
  Receipt Date: 20231218
  Transmission Date: 20240109
  Serious: Yes (Hospitalization)
  Sender: FDA-Public Use
  Company Number: US-GBT-016436

PATIENT
  Age: 46 Year
  Sex: Male

DRUGS (2)
  1. OXBRYTA [Suspect]
     Active Substance: VOXELOTOR
     Indication: Sickle cell anaemia with crisis
     Dosage: 1500 MG, 1X/DAY
     Route: 048
     Dates: start: 20200513
  2. OXBRYTA [Suspect]
     Active Substance: VOXELOTOR
     Indication: Sickle cell disease
     Dosage: UNK
     Route: 048
     Dates: start: 202003

REACTIONS (4)
  - Sickle cell disease [Unknown]
  - Pain [Recovering/Resolving]
  - Viral infection [Recovering/Resolving]
  - Fatigue [Recovering/Resolving]
